FAERS Safety Report 8961752 (Version 1)
Quarter: 2012Q4

REPORT INFORMATION
  Report Type: 
  Country: KR (occurrence: KR)
  Receive Date: 20121213
  Receipt Date: 20121213
  Transmission Date: 20130627
  Serious: Yes (Other)
  Sender: FDA-Public Use
  Company Number: KR-PFIZER INC-2012308003

PATIENT
  Age: 60 Year
  Sex: Male

DRUGS (2)
  1. FINASTERIDE [Suspect]
     Indication: BENIGN PROSTATIC HYPERPLASIA
     Dosage: UNK
  2. ALFUZOSIN [Suspect]
     Indication: BENIGN PROSTATIC HYPERPLASIA
     Dosage: UNK

REACTIONS (6)
  - Blindness [Recovered/Resolved]
  - Pupillary reflex impaired [Not Recovered/Not Resolved]
  - Optic ischaemic neuropathy [Unknown]
  - Hypotension [Unknown]
  - Colour blindness acquired [Recovered/Resolved]
  - Dizziness [Recovering/Resolving]
